FAERS Safety Report 24295942 (Version 1)
Quarter: 2024Q3

REPORT INFORMATION
  Report Type: Report from Study
  Country: ZA (occurrence: ZA)
  Receive Date: 20240909
  Receipt Date: 20240909
  Transmission Date: 20241016
  Serious: Yes (Other)
  Sender: ABBVIE
  Company Number: ZA-ABBVIE-5890818

PATIENT
  Age: 39 Year
  Sex: Female

DRUGS (1)
  1. HUMIRA [Suspect]
     Active Substance: ADALIMUMAB
     Indication: Rheumatoid arthritis
     Dosage: FORM STRENGTH: 40MG?STOPPED DATE  2024
     Route: 058
     Dates: start: 20240606

REACTIONS (6)
  - Parotid gland enlargement [Recovering/Resolving]
  - Blood pressure increased [Recovering/Resolving]
  - Headache [Recovered/Resolved]
  - Swelling face [Recovering/Resolving]
  - Peripheral swelling [Recovered/Resolved]
  - Lymphadenopathy [Recovering/Resolving]

NARRATIVE: CASE EVENT DATE: 20240101
